FAERS Safety Report 7475658-3 (Version None)
Quarter: 2011Q2

REPORT INFORMATION
  Report Type: 
  Country: None (occurrence: None)
  Receive Date: 20110512
  Receipt Date: 20110510
  Transmission Date: 20111010
  Serious: Yes (Hospitalization)
  Sender: FDA-Public Use
  Company Number: CH-ROCHE-776174

PATIENT
  Age: 69 Year
  Sex: Female

DRUGS (2)
  1. ARAVA [Concomitant]
     Indication: RHEUMATOID ARTHRITIS
  2. ACTEMRA [Suspect]
     Indication: RHEUMATOID ARTHRITIS
     Route: 042

REACTIONS (1)
  - JOINT EFFUSION [None]
